FAERS Safety Report 5144071-6 (Version None)
Quarter: 2006Q4

REPORT INFORMATION
  Report Type: 
  Country: None (occurrence: None)
  Receive Date: 20061106
  Receipt Date: 20061006
  Transmission Date: 20070319
  Serious: Yes (Other)
  Sender: FDA-Public Use
  Company Number: JP-JPN-A200604094

PATIENT
  Age: 26 Year
  Sex: Female

DRUGS (7)
  1. PAXIL [Suspect]
     Indication: DEPRESSION
     Dosage: 20MG PER DAY
     Route: 048
     Dates: start: 20060505, end: 20061010
  2. MIRADOL [Concomitant]
     Dosage: 50MG PER DAY
     Route: 048
     Dates: start: 20060505, end: 20061010
  3. RIZE [Concomitant]
     Dosage: 5MG TWICE PER DAY
     Route: 048
     Dates: start: 20060505
  4. DEPAS [Concomitant]
     Dosage: .5MG PER DAY
     Route: 048
     Dates: start: 20060505
  5. MYSLEE [Concomitant]
     Dosage: 10MG PER DAY
     Route: 048
     Dates: start: 20060505
  6. MAGLAX [Concomitant]
     Dosage: 330MG THREE TIMES PER DAY
     Route: 048
     Dates: start: 20060505, end: 20061010
  7. HOCHU-EKKI-TO [Concomitant]
     Dosage: 3.75G TWICE PER DAY
     Route: 048
     Dates: start: 20060505

REACTIONS (4)
  - DEPRESSED LEVEL OF CONSCIOUSNESS [None]
  - EPILEPSY [None]
  - GAIT DISTURBANCE [None]
  - MALAISE [None]
